FAERS Safety Report 16636609 (Version 1)
Quarter: 2019Q3

REPORT INFORMATION
  Report Type: Spontaneous
  Country: CA (occurrence: CA)
  Receive Date: 20190726
  Receipt Date: 20190726
  Transmission Date: 20191004
  Serious: Yes (Other)
  Sender: FDA-Public Use
  Company Number: CA-PFIZER INC-2019310773

PATIENT
  Age: 58 Year
  Sex: Female

DRUGS (2)
  1. FRAGMIN [Suspect]
     Active Substance: DALTEPARIN SODIUM
     Indication: INTERNATIONAL NORMALISED RATIO DECREASED
     Dosage: UNK
     Route: 065
  2. BEXSERO [Suspect]
     Active Substance: NEISSERIA MENINGITIDIS GROUP B FHBP FUSION PROTEIN ANTIGEN\NEISSERIA MENINGITIDIS GROUP B NADA PROTEIN ANTIGEN\NEISSERIA MENINGITIDIS GROUP B NHBA FUSION PROTEIN ANTIGEN\NEISSERIA MENINGITIDIS GROUP B STRAIN NZ98/254 OUTER MEMBRANE VESICLE\NEISSERIA MENINGITIDIS SEROGROUP B FHBP FUSION PROTEIN ANTIG
     Indication: IMMUNISATION
     Dosage: 0.5 ML, UNK
     Route: 030

REACTIONS (8)
  - Constipation [Not Recovered/Not Resolved]
  - Product administered to patient of inappropriate age [Not Recovered/Not Resolved]
  - Contusion [Not Recovered/Not Resolved]
  - Headache [Not Recovered/Not Resolved]
  - Intra-abdominal haematoma [Not Recovered/Not Resolved]
  - Body temperature increased [Not Recovered/Not Resolved]
  - International normalised ratio decreased [Not Recovered/Not Resolved]
  - Myalgia [Not Recovered/Not Resolved]
